FAERS Safety Report 6838975-3 (Version None)
Quarter: 2010Q3

REPORT INFORMATION
  Report Type: 
  Country: None (occurrence: None)
  Receive Date: 20100713
  Receipt Date: 20071109
  Transmission Date: 20110219
  Serious: No
  Sender: FDA-Public Use
  Company Number: US-PFIZER INC-2007040058

PATIENT
  Sex: Female
  Weight: 54.5 kg

DRUGS (13)
  1. CHANTIX [Suspect]
     Indication: SMOKING CESSATION THERAPY
     Route: 048
     Dates: start: 20070424
  2. CHANTIX [Suspect]
     Indication: NICOTINE DEPENDENCE
  3. CHANTIX [Suspect]
     Indication: ASTHMA
  4. SYNTHROID [Concomitant]
     Indication: THYROID DISORDER
  5. PULMICORT [Concomitant]
  6. ALBUTEROL SULFATE [Concomitant]
  7. CYPROHEPTADINE HCL [Concomitant]
  8. BUPROPION [Concomitant]
  9. PROCHLORPERAZINE [Concomitant]
  10. ADVAIR DISKUS 100/50 [Concomitant]
     Indication: HIV INFECTION
  11. DRUG, UNSPECIFIED [Concomitant]
     Indication: HIV INFECTION
  12. ATRIPLA [Concomitant]
  13. DOXEPIN HCL [Concomitant]
     Indication: PRURITUS

REACTIONS (2)
  - DRUG INEFFECTIVE [None]
  - TOBACCO USER [None]
